FAERS Safety Report 5636024-6 (Version None)
Quarter: 2008Q1

REPORT INFORMATION
  Report Type: 
  Country: None (occurrence: None)
  Receive Date: 20080220
  Receipt Date: 20080220
  Transmission Date: 20080703
  Serious: Yes (Other)
  Sender: FDA-Public Use
  Company Number: None

PATIENT
  Age: 50 Year
  Sex: Female
  Weight: 93.8946 kg

DRUGS (1)
  1. CHANTIX [Suspect]
     Indication: SMOKING CESSATION THERAPY
     Dosage: 2X DAILY PO
     Route: 048
     Dates: start: 20080105, end: 20080219

REACTIONS (7)
  - AGITATION [None]
  - BLOOD PRESSURE SYSTOLIC INCREASED [None]
  - DEPRESSED MOOD [None]
  - HEADACHE [None]
  - ILL-DEFINED DISORDER [None]
  - LETHARGY [None]
  - VEIN DISORDER [None]
